FAERS Safety Report 16446600 (Version 2)
Quarter: 2020Q2

REPORT INFORMATION
  Report Type: Spontaneous
  Country: DE (occurrence: DE)
  Receive Date: 20190618
  Receipt Date: 20200603
  Transmission Date: 20200713
  Serious: Yes (Hospitalization)
  Sender: FDA-Public Use
  Company Number: PHHY2019DE134999

PATIENT
  Age: 46 Year
  Sex: Female

DRUGS (4)
  1. VORICONAZOLE. [Suspect]
     Active Substance: VORICONAZOLE
     Indication: ASPERGILLUS INFECTION
     Dosage: 6 MG/KG BODY WEIGHT AS LOADING DOSE
     Route: 065
  2. VORICONAZOLE. [Suspect]
     Active Substance: VORICONAZOLE
     Dosage: UNK
     Route: 065
  3. VORICONAZOLE. [Suspect]
     Active Substance: VORICONAZOLE
     Dosage: 5 MG/KG, BIW, AS MAINTENANCE
     Route: 065
  4. VORICONAZOLE. [Suspect]
     Active Substance: VORICONAZOLE
     Dosage: 6 MG/KG BODY WEIGHT, AS LOADING DOSE AND 4 MG/KG BW AS MAINTENANCE
     Route: 065

REACTIONS (2)
  - Tracheobronchitis [Recovered/Resolved]
  - Disease progression [Recovered/Resolved]
